FAERS Safety Report 9891118 (Version 1)
Quarter: 2014Q1

REPORT INFORMATION
  Report Type: Spontaneous
  Country: US (occurrence: None)
  Receive Date: 20140211
  Receipt Date: 20140211
  Transmission Date: 20141002
  Serious: Yes (Disabling, Other)
  Sender: FDA-Public Use
  Company Number: None

PATIENT
  Age: 48 Year
  Sex: Female
  Weight: 89.81 kg

DRUGS (1)
  1. CIPRO [Suspect]
     Indication: URINARY TRACT INFECTION
     Route: 048

REACTIONS (8)
  - Cough [None]
  - Nausea [None]
  - Tremor [None]
  - Hyperventilation [None]
  - Neuropathy peripheral [None]
  - Gait disturbance [None]
  - Muscle fatigue [None]
  - Myalgia [None]
